FAERS Safety Report 8125692-5 (Version None)
Quarter: 2012Q1

REPORT INFORMATION
  Report Type: 
  Country: None (occurrence: None)
  Receive Date: 20120206
  Receipt Date: 20120124
  Transmission Date: 20120608
  Serious: Yes (Hospitalization)
  Sender: FDA-Public Use
  Company Number: BVT-000121

PATIENT
  Age: 69 Year
  Sex: Female

DRUGS (10)
  1. KINERET [Suspect]
     Indication: RHEUMATOID ARTHRITIS
     Dosage: (50 )
     Dates: start: 20021015, end: 20030315
  2. ARTIFICIAL SALIVA [Concomitant]
  3. CEPHALEXIN [Concomitant]
  4. LANSOPRAZOLE [Concomitant]
  5. LOSARTAN POTASSIUM [Concomitant]
  6. METHOTREXATE [Concomitant]
  7. NAPROXEN [Concomitant]
  8. EVISTA [Concomitant]
  9. BENDROFLUMETHIAZIDE (BENDROFLUMETHIAZIDE) [Concomitant]
  10. ACETAMINOPHEN WITH PROPOXYPHENE HCL TAB [Concomitant]

REACTIONS (1)
  - THYROID CANCER [None]
